FAERS Safety Report 25118935 (Version 1)
Quarter: 2025Q1

REPORT INFORMATION
  Report Type: Spontaneous
  Country: JP (occurrence: JP)
  Receive Date: 20250325
  Receipt Date: 20250325
  Transmission Date: 20250408
  Serious: Yes (Hospitalization)
  Sender: ELI LILLY AND COMPANY
  Company Number: JP-ELI_LILLY_AND_COMPANY-JP202503011679

PATIENT
  Age: 83 Year
  Sex: Female
  Weight: 48.2 kg

DRUGS (4)
  1. VERZENIO [Suspect]
     Active Substance: ABEMACICLIB
     Indication: Breast cancer recurrent
     Dosage: 100 MG, BID
     Route: 048
     Dates: start: 20230120, end: 20250307
  2. MIYA-BM [Concomitant]
     Active Substance: CLOSTRIDIUM BUTYRICUM SPORES STRAIN M-55
     Route: 048
  3. URSODIOL [Concomitant]
     Active Substance: URSODIOL
     Route: 048
  4. KAKKONTO [CINNAMOMUM CASSIA BARK;EPHEDRA SPP. [Concomitant]

REACTIONS (1)
  - Pulmonary toxicity [Not Recovered/Not Resolved]

NARRATIVE: CASE EVENT DATE: 20250307
